FAERS Safety Report 15456831 (Version 1)
Quarter: 2018Q4

REPORT INFORMATION
  Report Type: Spontaneous
  Country: US (occurrence: US)
  Receive Date: 20181002
  Receipt Date: 20181002
  Transmission Date: 20190204
  Serious: No
  Sender: FDA-Public Use
  Company Number: US-BAUSCH-BL-2018-025836

PATIENT
  Sex: Female
  Weight: 72.64 kg

DRUGS (2)
  1. APRISO [Suspect]
     Active Substance: MESALAMINE
     Indication: COLITIS
     Dosage: FOUR 0.375 G CAPSULES A DAY
     Route: 048
     Dates: start: 2013, end: 2018
  2. APRISO [Suspect]
     Active Substance: MESALAMINE
     Indication: OFF LABEL USE
     Dosage: TWO 0.375 G CAPSULES A DAY
     Route: 048
     Dates: start: 201803

REACTIONS (4)
  - Product use complaint [Not Recovered/Not Resolved]
  - Alopecia [Unknown]
  - Off label use [Not Recovered/Not Resolved]
  - Wrong technique in product usage process [Not Recovered/Not Resolved]
